FAERS Safety Report 8476600-9 (Version None)
Quarter: 2012Q2

REPORT INFORMATION
  Report Type: 
  Country: None (occurrence: None)
  Receive Date: 20120628
  Receipt Date: 20120615
  Transmission Date: 20120825
  Serious: Yes (Hospitalization, Other)
  Sender: FDA-Public Use
  Company Number: US-PFIZER INC-2012084308

PATIENT
  Sex: Male

DRUGS (19)
  1. MORPHINE SULFATE [Suspect]
     Indication: PAIN
     Route: 065
  2. OXYCONTIN [Suspect]
     Indication: PAIN
     Dosage: UNK, PM
     Route: 065
  3. ZOFRAN [Concomitant]
  4. SUTENT [Suspect]
     Indication: METASTATIC RENAL CELL CARCINOMA
     Dosage: 50 MG, 1X/DAY
     Route: 048
     Dates: start: 20120321
  5. METOPROLOL [Concomitant]
  6. COUMADIN [Concomitant]
  7. TERAZOSIN [Concomitant]
  8. MIRALAX [Concomitant]
  9. MEGACE [Concomitant]
  10. SUTENT [Suspect]
     Dosage: 50 MG, EVERY OTHER DAY
     Route: 048
     Dates: start: 20120418
  11. OMEPRAZOLE [Concomitant]
  12. PHENERGAN HCL [Concomitant]
  13. SIMVASTATIN [Concomitant]
  14. LISINOPRIL AND HYDROCHLOROTHIAZIDE [Concomitant]
  15. FOLTX [Concomitant]
  16. LORTAB [Concomitant]
     Indication: PAIN
  17. SUCRALFATE [Concomitant]
  18. LASIX [Concomitant]
  19. KAOPECTATE [Concomitant]

REACTIONS (22)
  - HALLUCINATION [None]
  - AZOTAEMIA [None]
  - FATIGUE [None]
  - DECREASED APPETITE [None]
  - DYSPNOEA [None]
  - MUSCULOSKELETAL PAIN [None]
  - WEIGHT DECREASED [None]
  - PAIN [None]
  - HYPONATRAEMIA [None]
  - DISEASE PROGRESSION [None]
  - BLOOD PRESSURE ABNORMAL [None]
  - METASTATIC PAIN [None]
  - HAEMORRHAGE [None]
  - YELLOW SKIN [None]
  - ASTHENIA [None]
  - PAIN IN EXTREMITY [None]
  - HYPERTENSION [None]
  - PYREXIA [None]
  - NAUSEA [None]
  - CONFUSIONAL STATE [None]
  - CONSTIPATION [None]
  - RENAL CELL CARCINOMA [None]
